FAERS Safety Report 6610040-X (Version None)
Quarter: 2010Q1

REPORT INFORMATION
  Report Type: 
  Country: None (occurrence: None)
  Receive Date: 20100302
  Receipt Date: 20100222
  Transmission Date: 20100710
  Serious: Yes (Hospitalization)
  Sender: FDA-Public Use
  Company Number: FR-ROCHE-687343

PATIENT
  Sex: Female

DRUGS (4)
  1. XELODA [Suspect]
     Indication: MALIGNANT MEDIASTINAL NEOPLASM
     Route: 048
     Dates: start: 20100130, end: 20100205
  2. TAXOTERE [Suspect]
     Indication: MALIGNANT MEDIASTINAL NEOPLASM
     Route: 042
     Dates: start: 20100130
  3. CARBOPLATIN [Suspect]
     Indication: MALIGNANT MEDIASTINAL NEOPLASM
     Dosage: DRUG: CARBOPLATINE TEVA
     Route: 042
     Dates: start: 20100130
  4. INNOHEP [Concomitant]
     Route: 058
     Dates: start: 20100127

REACTIONS (2)
  - BONE MARROW FAILURE [None]
  - PYREXIA [None]
